FAERS Safety Report 8804513 (Version 6)
Quarter: 2013Q4

REPORT INFORMATION
  Report Type: Spontaneous
  Country: US (occurrence: US)
  Receive Date: 20120924
  Receipt Date: 20131017
  Transmission Date: 20140711
  Serious: Yes (Hospitalization, Other)
  Sender: FDA-Public Use
  Company Number: US-009507513-1209USA007118

PATIENT
  Sex: Female
  Weight: 62.59 kg

DRUGS (6)
  1. FOSAMAX [Suspect]
     Indication: PROPHYLAXIS
     Dosage: 10 MG, QD
     Route: 048
     Dates: start: 19990610, end: 200107
  2. FOSAMAX [Suspect]
     Indication: OSTEOPOROSIS PROPHYLAXIS
     Dosage: 70 MG, QD
     Route: 048
     Dates: start: 200107, end: 20070501
  3. CALCIUM (UNSPECIFIED) [Concomitant]
     Dosage: 1220 MG, QD
     Dates: start: 1980
  4. VITAMIN D (UNSPECIFIED) [Concomitant]
     Dosage: 900 IU, QD
     Dates: start: 1980
  5. VITAMINS (UNSPECIFIED) [Concomitant]
     Dosage: 1 DF, QD
     Route: 048
     Dates: start: 1980
  6. HORMONES (UNSPECIFIED) [Concomitant]
     Dosage: UNK
     Dates: start: 1990, end: 2000

REACTIONS (19)
  - Femur fracture [Unknown]
  - Open reduction of fracture [Unknown]
  - Tibia fracture [Unknown]
  - Lower limb fracture [Unknown]
  - Contusion [Unknown]
  - Haemorrhagic anaemia [Unknown]
  - Fall [Unknown]
  - Skin lesion [Unknown]
  - Vitamin D deficiency [Unknown]
  - Blood cholesterol increased [Unknown]
  - Osteopenia [Unknown]
  - Skin ulcer [Recovered/Resolved]
  - Coronary artery disease [Unknown]
  - Asthma [Unknown]
  - Anxiety [Unknown]
  - Limb deformity [Unknown]
  - Osteoarthritis [Unknown]
  - Knee deformity [Unknown]
  - Overdose [Unknown]
